APPROVED DRUG PRODUCT: REVERSOL
Active Ingredient: EDROPHONIUM CHLORIDE
Strength: 10MG/ML
Dosage Form/Route: INJECTABLE;INJECTION
Application: A089624 | Product #001
Applicant: ORGANON USA INC
Approved: May 13, 1988 | RLD: No | RS: No | Type: DISCN